FAERS Safety Report 23181393 (Version 2)
Quarter: 2023Q4

REPORT INFORMATION
  Report Type: Report from Study
  Country: PE (occurrence: PE)
  Receive Date: 20231114
  Receipt Date: 20231226
  Transmission Date: 20240109
  Serious: Yes (Hospitalization, Other)
  Sender: FDA-Public Use
  Company Number: PE-002147023-NVSC2022PE066015

PATIENT
  Age: 55 Year
  Sex: Female
  Weight: 59 kg

DRUGS (5)
  1. KISQALI [Suspect]
     Active Substance: RIBOCICLIB
     Indication: Breast cancer metastatic
     Dosage: 600 MG, QD
     Route: 048
     Dates: start: 20220121
  2. KISQALI [Suspect]
     Active Substance: RIBOCICLIB
     Dosage: 400 MG, QD
     Route: 048
     Dates: start: 20220121
  3. KISQALI [Suspect]
     Active Substance: RIBOCICLIB
     Dosage: 200 MG, QD
     Route: 048
     Dates: start: 20220121
  4. KISQALI [Suspect]
     Active Substance: RIBOCICLIB
     Dosage: 200 MG, QD
     Route: 048
     Dates: start: 20220221
  5. KISQALI [Suspect]
     Active Substance: RIBOCICLIB
     Dosage: 400 MG, QD
     Route: 048
     Dates: start: 20231103

REACTIONS (8)
  - Cellulitis [Unknown]
  - Illness [Unknown]
  - Neutropenia [Unknown]
  - Urticaria [Recovered/Resolved]
  - Tumour marker decreased [Unknown]
  - Pruritus [Recovered/Resolved]
  - Haemoglobin decreased [Unknown]
  - Oropharyngeal discomfort [Unknown]

NARRATIVE: CASE EVENT DATE: 20220301
